FAERS Safety Report 5118024-8 (Version None)
Quarter: 2006Q3

REPORT INFORMATION
  Report Type: 
  Country: None (occurrence: None)
  Receive Date: 20060929
  Receipt Date: 20060921
  Transmission Date: 20061208
  Serious: Yes (Death, Hospitalization, Other)
  Sender: FDA-Public Use
  Company Number: CA-BRISTOL-MYERS SQUIBB COMPANY-13518592

PATIENT
  Age: 80 Year
  Sex: Female

DRUGS (35)
  1. TEQUIN [Suspect]
     Route: 048
     Dates: start: 20050610
  2. CELEXA [Concomitant]
     Dates: start: 20050417
  3. ATIVAN [Concomitant]
     Route: 048
     Dates: start: 20050525, end: 20050610
  4. TYLENOL [Concomitant]
  5. GUAIFENESIN [Concomitant]
  6. PREDNISONE [Concomitant]
  7. MYCOSTATIN [Concomitant]
     Route: 048
     Dates: start: 20050610
  8. BISOPROLOL FUMARATE [Concomitant]
     Route: 048
     Dates: start: 20050610
  9. NOVOLIN 70/30 [Concomitant]
     Dates: start: 20050610, end: 20050617
  10. NOVOLIN 70/30 [Concomitant]
     Dates: start: 20050610, end: 20050617
  11. NOVOLIN 70/30 [Concomitant]
     Dates: start: 20050617
  12. NOVOLIN 70/30 [Concomitant]
     Dates: start: 20050617
  13. FOSAMAX [Concomitant]
  14. ATENOLOL [Concomitant]
  15. LASIX [Concomitant]
     Route: 048
  16. HYDROCHLOROTHIAZDE TAB [Concomitant]
  17. ALDACTONE [Concomitant]
  18. SLOW-K [Concomitant]
  19. VOLTAREN [Concomitant]
  20. DOCUSATE [Concomitant]
  21. PARIET [Concomitant]
  22. CALCIUM GLUCONATE [Concomitant]
     Route: 048
  23. SERAX [Concomitant]
  24. SENOKOT [Concomitant]
  25. REMERON [Concomitant]
  26. DURAGESIC-100 [Concomitant]
  27. DIGOXIN [Concomitant]
  28. PREVACID [Concomitant]
     Route: 048
  29. METOPROLOL [Concomitant]
     Route: 048
  30. FOLATE [Concomitant]
     Route: 048
  31. AVELOX [Concomitant]
     Route: 048
  32. KEFLEX [Concomitant]
     Dates: start: 20050704, end: 20050709
  33. PREDNISONE [Concomitant]
     Indication: RHEUMATOID ARTHRITIS
     Route: 048
  34. CITALOPRAM HYDROBROMIDE [Concomitant]
  35. INSULIN [Concomitant]

REACTIONS (20)
  - ATRIAL FIBRILLATION [None]
  - BLOOD CREATININE INCREASED [None]
  - BRADYCARDIA [None]
  - CONFUSIONAL STATE [None]
  - CONSTIPATION [None]
  - DEHYDRATION [None]
  - DIABETES MELLITUS [None]
  - FAECALOMA [None]
  - FAILURE TO THRIVE [None]
  - GASTROINTESTINAL HAEMORRHAGE [None]
  - HERPES SIMPLEX [None]
  - HYPERGLYCAEMIA [None]
  - HYPERKALAEMIA [None]
  - HYPOGLYCAEMIA [None]
  - HYPOTENSION [None]
  - PNEUMONIA [None]
  - RENAL FAILURE ACUTE [None]
  - SEPTIC SHOCK [None]
  - THROMBOCYTOPENIA [None]
  - UROSEPSIS [None]
